FAERS Safety Report 7369260-1 (Version None)
Quarter: 2011Q1

REPORT INFORMATION
  Report Type: 
  Country: None (occurrence: None)
  Receive Date: 20110323
  Receipt Date: 20110314
  Transmission Date: 20110831
  Serious: Yes (Hospitalization)
  Sender: FDA-Public Use
  Company Number: A0887641A

PATIENT
  Age: 77 Year
  Sex: Male
  Weight: 109.1 kg

DRUGS (6)
  1. AVANDIA [Suspect]
     Indication: DIABETES MELLITUS
     Dosage: 4MG PER DAY
     Route: 048
     Dates: start: 20070415, end: 20070620
  2. GLIPIZIDE [Concomitant]
     Dates: end: 20070620
  3. AVANDARYL [Suspect]
     Indication: DIABETES MELLITUS
     Route: 048
     Dates: start: 20070620, end: 20100107
  4. SIMVASTATIN [Concomitant]
  5. COREG [Concomitant]
  6. LISINOPRIL AND HYDROCHLOROTHIAZIDE [Concomitant]

REACTIONS (11)
  - CARDIAC ASSISTANCE DEVICE USER [None]
  - SINUS BRADYCARDIA [None]
  - ABDOMINAL PAIN [None]
  - PYREXIA [None]
  - SICK SINUS SYNDROME [None]
  - DIARRHOEA [None]
  - DEHYDRATION [None]
  - CHILLS [None]
  - CARDIAC FAILURE CONGESTIVE [None]
  - RENAL FAILURE CHRONIC [None]
  - ABDOMINAL DISTENSION [None]
